FAERS Safety Report 5026710-3 (Version None)
Quarter: 2006Q2

REPORT INFORMATION
  Report Type: 
  Country: None (occurrence: None)
  Receive Date: 20060615
  Receipt Date: 20060215
  Transmission Date: 20061013
  Serious: Yes (Hospitalization)
  Sender: FDA-Public Use
  Company Number: US-ROCHE-436812

PATIENT
  Age: 21 Year
  Sex: Male

DRUGS (1)
  1. ACCUTANE [Suspect]
     Indication: DRUG USE FOR UNKNOWN INDICATION
     Route: 048
     Dates: start: 20040115, end: 20040515

REACTIONS (6)
  - APPENDICITIS [None]
  - BLOOD AMYLASE INCREASED [None]
  - CROHN'S DISEASE [None]
  - HYPERALBUMINAEMIA [None]
  - NEUROPATHY [None]
  - WEIGHT DECREASED [None]
